FAERS Safety Report 4821749-2 (Version None)
Quarter: 2005Q4

REPORT INFORMATION
  Report Type: 
  Country: None (occurrence: None)
  Receive Date: 20051107
  Receipt Date: 20050928
  Transmission Date: 20060501
  Serious: Yes (Hospitalization, Other)
  Sender: FDA-Public Use
  Company Number: JP-BRISTOL-MYERS SQUIBB COMPANY-13128780

PATIENT
  Age: 48 Year
  Sex: Female

DRUGS (10)
  1. MITOMYCIN [Suspect]
     Indication: OVARIAN EPITHELIAL CANCER
     Route: 042
     Dates: start: 20040408, end: 20040708
  2. ENDOXAN [Suspect]
     Indication: OVARIAN EPITHELIAL CANCER
     Route: 042
     Dates: start: 20040408, end: 20040708
  3. FLUOROURACIL [Suspect]
     Indication: OVARIAN EPITHELIAL CANCER
     Route: 042
     Dates: start: 20040408, end: 20040708
  4. NAUZELIN [Concomitant]
     Route: 048
     Dates: start: 20040517, end: 20040715
  5. SOLU-CORTEF [Concomitant]
     Route: 042
     Dates: start: 20040408, end: 20040708
  6. MAGNESIUM OXIDE [Concomitant]
     Route: 048
     Dates: start: 20040407, end: 20040715
  7. MUCOSTA [Concomitant]
     Route: 048
     Dates: start: 20040407, end: 20040729
  8. CHINESE HERBS [Concomitant]
     Route: 048
     Dates: start: 20040407, end: 20040729
  9. GASMOTIN [Concomitant]
     Route: 048
     Dates: start: 20040716, end: 20040729
  10. VOLTAREN [Concomitant]
     Dates: start: 20040507, end: 20040507

REACTIONS (4)
  - HAEMODIALYSIS [None]
  - HAEMOLYTIC URAEMIC SYNDROME [None]
  - PANCYTOPENIA [None]
  - RENAL IMPAIRMENT [None]
